FAERS Safety Report 22541897 (Version 1)
Quarter: 2023Q2

REPORT INFORMATION
  Report Type: Spontaneous
  Country: US (occurrence: US)
  Receive Date: 20230609
  Receipt Date: 20230609
  Transmission Date: 20230721
  Serious: Yes (Other)
  Sender: FDA-Public Use
  Company Number: US-Calliditas-2023CAL00522

PATIENT
  Age: 44 Year
  Sex: Female

DRUGS (1)
  1. TARPEYO [Suspect]
     Active Substance: BUDESONIDE
     Indication: Haematuria
     Dosage: 8 MG (4 MG CAPSULES) ONCE DAILY
     Route: 048
     Dates: start: 20230510

REACTIONS (5)
  - Hypertensive urgency [Unknown]
  - Headache [Unknown]
  - Intentional dose omission [Unknown]
  - Off label use [Unknown]
  - Prescribed underdose [Unknown]
